FAERS Safety Report 8319964-9 (Version None)
Quarter: 2012Q2

REPORT INFORMATION
  Report Type: 
  Country: None (occurrence: None)
  Receive Date: 20120427
  Receipt Date: 20120420
  Transmission Date: 20120825
  Serious: Yes (Other)
  Sender: FDA-Public Use
  Company Number: US-ROCHE-1027683

PATIENT
  Sex: Female
  Weight: 95.34 kg

DRUGS (2)
  1. ACCUTANE [Suspect]
     Indication: ACNE
     Dates: start: 19970101, end: 19980101
  2. ACCUTANE [Suspect]
     Dates: start: 19980101, end: 19990101

REACTIONS (5)
  - CROHN'S DISEASE [None]
  - ANAL FISTULA [None]
  - INTESTINAL HAEMORRHAGE [None]
  - DEPRESSION [None]
  - INTESTINAL OBSTRUCTION [None]
